FAERS Safety Report 9677406 (Version 2)
Quarter: 2014Q1

REPORT INFORMATION
  Report Type: Spontaneous
  Country: DE (occurrence: DE)
  Receive Date: 20131108
  Receipt Date: 20140124
  Transmission Date: 20141002
  Serious: Yes (Death, Other)
  Sender: FDA-Public Use
  Company Number: DE-CELGENEUS-062-21880-13104867

PATIENT
  Age: 74 Year
  Sex: Female

DRUGS (5)
  1. REVLIMID [Suspect]
     Indication: CHRONIC LYMPHOCYTIC LEUKAEMIA
     Dosage: 5 MILLIGRAM
     Route: 048
     Dates: start: 20130715, end: 2013
  2. PREDNISOLONE [Concomitant]
     Indication: PRODUCT USED FOR UNKNOWN INDICATION
     Route: 065
     Dates: start: 20130626, end: 20130710
  3. PREDNISOLONE [Concomitant]
     Route: 065
     Dates: start: 201108, end: 201109
  4. DEXAMETHASONE [Concomitant]
     Indication: PRODUCT USED FOR UNKNOWN INDICATION
     Dosage: 40 MILLIGRAM
     Route: 065
     Dates: start: 20130712, end: 20130716
  5. IMMUNOGLOBULIN [Concomitant]
     Indication: PRODUCT USED FOR UNKNOWN INDICATION
     Dosage: 40 MILLIGRAM
     Route: 065
     Dates: start: 20130713

REACTIONS (5)
  - Subdural haematoma [Fatal]
  - Fall [Fatal]
  - Neutropenia [Unknown]
  - Infection [Unknown]
  - Staphylococcal sepsis [Unknown]
